FAERS Safety Report 8436346-X (Version None)
Quarter: 2012Q2

REPORT INFORMATION
  Report Type: 
  Country: None (occurrence: None)
  Receive Date: 20120614
  Receipt Date: 20120424
  Transmission Date: 20120825
  Serious: Yes (Hospitalization)
  Sender: FDA-Public Use
  Company Number: HU-JNJFOC-20111009088

PATIENT
  Sex: Male
  Weight: 76 kg

DRUGS (9)
  1. BUDESONIDE [Concomitant]
     Indication: COLITIS ULCERATIVE
     Dates: start: 20110310
  2. PENTASA [Concomitant]
     Route: 048
     Dates: start: 20080305
  3. MESALAMINE [Concomitant]
     Indication: COLITIS ULCERATIVE
     Dates: start: 20110101
  4. GOLIMUMAB [Suspect]
     Route: 058
     Dates: start: 20080812
  5. GOLIMUMAB [Suspect]
     Route: 058
     Dates: start: 20111013
  6. GOLIMUMAB [Suspect]
     Indication: COLITIS ULCERATIVE
     Route: 058
     Dates: start: 20110915
  7. GOLIMUMAB [Suspect]
     Route: 058
     Dates: start: 20080925
  8. LANSOPRAZOLE [Concomitant]
     Route: 048
     Dates: start: 20091001
  9. AZATHIOPRINE [Concomitant]
     Indication: COLITIS ULCERATIVE
     Route: 048
     Dates: start: 20100401

REACTIONS (1)
  - NEPHROLITHIASIS [None]
